FAERS Safety Report 8118879-9 (Version None)
Quarter: 2012Q1

REPORT INFORMATION
  Report Type: 
  Country: None (occurrence: None)
  Receive Date: 20120207
  Receipt Date: 20120203
  Transmission Date: 20120608
  Serious: Yes (Other)
  Sender: FDA-Public Use
  Company Number: US-PFIZER INC-2012030890

PATIENT
  Age: 78 Year
  Sex: Female
  Weight: 89.342 kg

DRUGS (2)
  1. JANUVIA [Concomitant]
     Indication: GLUCOSE TOLERANCE IMPAIRED
     Dosage: UNK
     Route: 048
  2. LYRICA [Suspect]
     Indication: PAIN
     Dosage: UNK
     Dates: start: 20080201, end: 20120101

REACTIONS (8)
  - CEREBROVASCULAR ACCIDENT [None]
  - MOOD SWINGS [None]
  - SUICIDE ATTEMPT [None]
  - MENTAL IMPAIRMENT [None]
  - AGGRESSION [None]
  - CONVULSION [None]
  - ANXIETY [None]
  - URINARY TRACT INFECTION [None]
